FAERS Safety Report 21509897 (Version 2)
Quarter: 2022Q4

REPORT INFORMATION
  Report Type: Spontaneous
  Country: MA (occurrence: MA)
  Receive Date: 20221026
  Receipt Date: 20221116
  Transmission Date: 20230113
  Serious: No
  Sender: FDA-Public Use
  Company Number: MA-PFIZER INC-PV202200073473

PATIENT
  Age: 9 Year
  Sex: Male

DRUGS (1)
  1. GENOTROPIN [Suspect]
     Active Substance: SOMATROPIN
     Indication: Growth disorder
     Dosage: 1 MG, DAILY (1 MG / EVERYDAY)
     Route: 058
     Dates: start: 20220411

REACTIONS (2)
  - Device malfunction [Unknown]
  - Device information output issue [Unknown]
